FAERS Safety Report 21270519 (Version 1)
Quarter: 2022Q3

REPORT INFORMATION
  Report Type: Spontaneous
  Country: CN (occurrence: CN)
  Receive Date: 20220830
  Receipt Date: 20220830
  Transmission Date: 20221026
  Serious: Yes (Disabling, Other)
  Sender: FDA-Public Use
  Company Number: CN-PFIZER INC-PV202200050084

PATIENT
  Age: 90 Year
  Sex: Male
  Weight: 40 kg

DRUGS (2)
  1. DIFLUCAN [Suspect]
     Active Substance: FLUCONAZOLE
     Indication: Fungal infection
     Dosage: 0.4 G, 1X/DAY
     Route: 041
     Dates: start: 20220804, end: 20220804
  2. DIFLUCAN [Suspect]
     Active Substance: FLUCONAZOLE
     Dosage: 0.2 G, 1X/DAY
     Route: 041
     Dates: start: 20220805, end: 20220813

REACTIONS (5)
  - Hepatic function abnormal [Recovering/Resolving]
  - Alanine aminotransferase increased [Recovering/Resolving]
  - Aspartate aminotransferase increased [Recovering/Resolving]
  - Gamma-glutamyltransferase increased [Recovering/Resolving]
  - Blood cholinesterase increased [Recovering/Resolving]

NARRATIVE: CASE EVENT DATE: 20220810
